FAERS Safety Report 13722149 (Version 5)
Quarter: 2018Q2

REPORT INFORMATION
  Report Type: Spontaneous
  Country: US (occurrence: US)
  Receive Date: 20170706
  Receipt Date: 20180405
  Transmission Date: 20180711
  Serious: No
  Sender: FDA-Public Use
  Company Number: US-PFIZER INC-2017278105

PATIENT
  Age: 83 Year
  Sex: Female

DRUGS (1)
  1. XELJANZ [Suspect]
     Active Substance: TOFACITINIB CITRATE
     Indication: RHEUMATOID ARTHRITIS
     Dosage: 15 MG, DAILY (2 IN AM, 1 IN PM / 2 TABLETS EVERY MORNING AND 1 TABLET EVERY NIGHT)
     Route: 048

REACTIONS (3)
  - Weight decreased [Unknown]
  - Cough [Unknown]
  - Nasopharyngitis [Unknown]
